FAERS Safety Report 16643131 (Version 4)
Quarter: 2019Q3

REPORT INFORMATION
  Report Type: Spontaneous
  Country: US (occurrence: US)
  Receive Date: 20190729
  Receipt Date: 20190923
  Transmission Date: 20191004
  Serious: No
  Sender: FDA-Public Use
  Company Number: US-PFIZER INC-2019322093

PATIENT
  Age: 78 Year
  Sex: Male
  Weight: 82.54 kg

DRUGS (3)
  1. LYRICA [Suspect]
     Active Substance: PREGABALIN
     Dosage: 75 MG, UNK
  2. LYRICA [Suspect]
     Active Substance: PREGABALIN
     Dosage: 75 MG, DAILY (FOR 7 DAYS THEN INCREASE TO EVERY 12 HOURS 90 DAYS)
     Route: 048
  3. LYRICA [Suspect]
     Active Substance: PREGABALIN
     Dosage: 75 MG, 2X/DAY (FOR 7 DAYS THEN INCREASE TO EVERY 12 HOURS 90 DAYS)
     Route: 048

REACTIONS (2)
  - Sciatica [Unknown]
  - Herpes zoster [Unknown]
